FAERS Safety Report 15749633 (Version 1)
Quarter: 2018Q4

REPORT INFORMATION
  Report Type: Spontaneous
  Country: DE (occurrence: DE)
  Receive Date: 20181221
  Receipt Date: 20181221
  Transmission Date: 20190205
  Serious: Yes (Other)
  Sender: FDA-Public Use
  Company Number: DE-AMGEN-DEUSP2018173646

PATIENT
  Age: 50 Year
  Sex: Male
  Weight: 88 kg

DRUGS (5)
  1. ATORVASTATIN [Concomitant]
     Active Substance: ATORVASTATIN
     Dosage: 40 MG, QD
  2. REPATHA [Suspect]
     Active Substance: EVOLOCUMAB
     Indication: CORONARY ARTERY DISEASE
  3. EZETROL [Concomitant]
     Active Substance: EZETIMIBE
     Indication: PRIMARY HYPERCHOLESTEROLAEMIA
     Dosage: 10 MG, UNK
  4. REPATHA [Suspect]
     Active Substance: EVOLOCUMAB
     Indication: PRIMARY HYPERCHOLESTEROLAEMIA
     Dosage: 140 MG, Q2WK
     Route: 058
     Dates: start: 20170109, end: 20180802
  5. ATORVASTATIN [Concomitant]
     Active Substance: ATORVASTATIN
     Indication: PRIMARY HYPERCHOLESTEROLAEMIA
     Dosage: 80 MG, UNK

REACTIONS (3)
  - Arthralgia [Recovering/Resolving]
  - Sciatica [Recovering/Resolving]
  - Myalgia [Recovering/Resolving]

NARRATIVE: CASE EVENT DATE: 20170306
